FAERS Safety Report 25649679 (Version 1)
Quarter: 2025Q3

REPORT INFORMATION
  Report Type: Spontaneous
  Country: US (occurrence: None)
  Receive Date: 20250805
  Receipt Date: 20250805
  Transmission Date: 20251020
  Serious: Yes (Disabling, Other)
  Sender: FDA-CTU
  Company Number: None

PATIENT
  Age: 66 Year
  Sex: Female
  Weight: 61.65 kg

DRUGS (9)
  1. CAMZYOS [Suspect]
     Active Substance: MAVACAMTEN
     Indication: Hypertrophic cardiomyopathy
     Dosage: FREQUENCY : DAILY;?
     Route: 048
     Dates: start: 20250723, end: 20250726
  2. PREDNISONE [Concomitant]
     Active Substance: PREDNISONE
  3. VITAMINS [Concomitant]
     Active Substance: VITAMINS
  4. Triple omega [Concomitant]
  5. AVOCADO [Concomitant]
     Active Substance: AVOCADO
  6. Bananas [Concomitant]
  7. LEMON [Concomitant]
     Active Substance: LEMON
  8. Molasses [Concomitant]
  9. DIETARY SUPPLEMENT\HERBALS\MILK THISTLE [Concomitant]
     Active Substance: MILK THISTLE

REACTIONS (21)
  - Therapy change [None]
  - Lethargy [None]
  - Brain fog [None]
  - Limb discomfort [None]
  - Muscle spasms [None]
  - Arthralgia [None]
  - Pruritus [None]
  - Hyperhidrosis [None]
  - Rhinorrhoea [None]
  - Chest discomfort [None]
  - Chest discomfort [None]
  - Hypersomnia [None]
  - Contusion [None]
  - Pain in extremity [None]
  - Diarrhoea [None]
  - Headache [None]
  - Dizziness [None]
  - Toxicity to various agents [None]
  - Liver injury [None]
  - Palmar erythema [None]
  - Skin discolouration [None]

NARRATIVE: CASE EVENT DATE: 20250724
